APPROVED DRUG PRODUCT: OMEPRAZOLE MAGNESIUM
Active Ingredient: OMEPRAZOLE MAGNESIUM
Strength: EQ 20MG BASE
Dosage Form/Route: TABLET, DELAYED RELEASE;ORAL
Application: A206877 | Product #001
Applicant: AUROBINDO PHARMA LTD
Approved: Jun 6, 2018 | RLD: No | RS: No | Type: OTC